FAERS Safety Report 16139056 (Version 1)
Quarter: 2019Q2

REPORT INFORMATION
  Report Type: Spontaneous
  Country: FR (occurrence: FR)
  Receive Date: 20190401
  Receipt Date: 20190401
  Transmission Date: 20190711
  Serious: Yes (Hospitalization)
  Sender: FDA-Public Use
  Company Number: FR-ACCORD-116341

PATIENT
  Age: 76 Year
  Sex: Male
  Weight: 55 kg

DRUGS (12)
  1. PARACETAMOL [Suspect]
     Active Substance: ACETAMINOPHEN
     Indication: PAIN
     Route: 048
     Dates: end: 20181025
  2. ENDOXAN [Suspect]
     Active Substance: CYCLOPHOSPHAMIDE
     Indication: DIFFUSE LARGE B-CELL LYMPHOMA STAGE IV
     Dosage: 3 CYCLES R-CHOP
     Route: 041
     Dates: start: 20180910, end: 20181025
  3. DOXORUBICIN TEVA [Suspect]
     Active Substance: DOXORUBICIN
     Indication: DIFFUSE LARGE B-CELL LYMPHOMA STAGE IV
     Dosage: 3 CYCLES DE R-CHOP
     Route: 041
     Dates: start: 20180910, end: 20181025
  4. WELLVONE [Concomitant]
     Active Substance: ATOVAQUONE
     Indication: ANTIFUNGAL PROPHYLAXIS
     Dosage: STRENGTH 750 MG / 5 ML
     Route: 048
     Dates: start: 20180919
  5. METHOTREXATE MYLAN [Concomitant]
     Active Substance: METHOTREXATE SODIUM
     Indication: DIFFUSE LARGE B-CELL LYMPHOMA STAGE IV
     Route: 037
     Dates: start: 20181002, end: 20181025
  6. EMEND [Suspect]
     Active Substance: APREPITANT
     Indication: PROPHYLAXIS OF NAUSEA AND VOMITING
     Dosage: J1 J3 DE CHAQUE R-CHOP
     Route: 048
     Dates: start: 20180910, end: 20181027
  7. VALACICLOVIR [Concomitant]
     Active Substance: VALACYCLOVIR HYDROCHLORIDE
     Indication: ANTIVIRAL PROPHYLAXIS
     Route: 048
     Dates: start: 20180919
  8. VINCRISTINE TEVA [Suspect]
     Active Substance: VINCRISTINE
     Indication: DIFFUSE LARGE B-CELL LYMPHOMA STAGE IV
     Dosage: 3 CYCLES R-CHOP
     Route: 041
     Dates: start: 20180910, end: 20181025
  9. MESNA. [Concomitant]
     Active Substance: MESNA
     Indication: BLADDER IRRITATION
     Route: 041
     Dates: start: 20180910, end: 20181025
  10. PREDNISONE. [Concomitant]
     Active Substance: PREDNISONE
     Indication: DIFFUSE LARGE B-CELL LYMPHOMA STAGE IV
     Dosage: J2-J5 DE CHAQUE R-CHOP
     Route: 048
     Dates: start: 20180910, end: 20181030
  11. ONDANSETRON [Suspect]
     Active Substance: ONDANSETRON
     Indication: PROPHYLAXIS OF NAUSEA AND VOMITING
     Dosage: J1 J5 DE CHAQUE R-CHOP
     Route: 048
     Dates: start: 20180910, end: 20181030
  12. MABTHERA [Concomitant]
     Active Substance: RITUXIMAB
     Indication: DIFFUSE LARGE B-CELL LYMPHOMA STAGE IV
     Dosage: STRENGTH 1400 MG SOLUTION FOR SUBCUTANEOUS INJECTION,3 CYCLES DE R-CHOP
     Route: 058
     Dates: start: 20180910, end: 20181025

REACTIONS (1)
  - Fixed eruption [Recovered/Resolved]

NARRATIVE: CASE EVENT DATE: 20181027
